FAERS Safety Report 23821003 (Version 1)
Quarter: 2024Q2

REPORT INFORMATION
  Report Type: Spontaneous
  Country: US (occurrence: US)
  Receive Date: 20240506
  Receipt Date: 20240506
  Transmission Date: 20240715
  Serious: No
  Sender: FDA-Public Use
  Company Number: US-GALDERMA-US2024003054

PATIENT

DRUGS (3)
  1. EPSOLAY [Suspect]
     Active Substance: BENZOYL PEROXIDE
     Indication: Rosacea
     Dosage: 30 GRAM, SINGLE, APPLIED ON NOSE AND CHIN
     Route: 065
     Dates: start: 20240214, end: 20240214
  2. CALCIUM [Concomitant]
     Active Substance: CALCIUM
     Indication: Product used for unknown indication
     Dosage: 1 DOSAGE FORM
     Route: 065
  3. CHOLECALCIFEROL [Concomitant]
     Active Substance: CHOLECALCIFEROL
     Indication: Product used for unknown indication
     Route: 065

REACTIONS (9)
  - Rash [Recovered/Resolved]
  - Eye swelling [Recovering/Resolving]
  - Lip swelling [Recovering/Resolving]
  - Lip dry [Recovering/Resolving]
  - Skin burning sensation [Recovered/Resolved]
  - Pain of skin [Recovered/Resolved]
  - Erythema [Recovering/Resolving]
  - Skin swelling [Recovering/Resolving]
  - Skin exfoliation [Not Recovered/Not Resolved]

NARRATIVE: CASE EVENT DATE: 20240214
